FAERS Safety Report 9186864 (Version 2)
Quarter: 2013Q1

REPORT INFORMATION
  Report Type: Spontaneous
  Country: US (occurrence: US)
  Receive Date: 20130325
  Receipt Date: 20130325
  Transmission Date: 20140127
  Serious: No
  Sender: FDA-Public Use
  Company Number: US-009507513-1303USA009686

PATIENT
  Age: 11 Year
  Sex: Male

DRUGS (4)
  1. MIRALAX [Suspect]
     Indication: GASTROINTESTINAL MOTILITY DISORDER
     Dosage: UNK, UNKNOWN
     Route: 048
     Dates: start: 20130121
  2. MIRALAX [Suspect]
     Indication: ABDOMINAL PAIN UPPER
     Dosage: UNK UNK, PRN
     Route: 048
  3. CORRECTOL NOS [Suspect]
     Indication: GASTROINTESTINAL MOTILITY DISORDER
     Dosage: 2 DF, ONCE
     Route: 048
     Dates: start: 20130121
  4. CORRECTOL NOS [Suspect]
     Indication: ABDOMINAL PAIN UPPER

REACTIONS (6)
  - Breath odour [Not Recovered/Not Resolved]
  - Overdose [Not Recovered/Not Resolved]
  - Incorrect drug administration duration [Unknown]
  - Drug administered to patient of inappropriate age [Unknown]
  - Drug ineffective [Unknown]
  - Off label use [Unknown]
